FAERS Safety Report 5237100-2 (Version None)
Quarter: 2007Q1

REPORT INFORMATION
  Report Type: 
  Country: None (occurrence: None)
  Receive Date: 20061208
  Receipt Date: 20050418
  Transmission Date: 20070707
  Serious: Yes (Other)
  Sender: FDA-Public Use
  Company Number: 2005UW06004

PATIENT
  Age: 86 Year
  Sex: Male
  Weight: 86.182 kg

DRUGS (3)
  1. CRESTOR [Suspect]
     Indication: BLOOD CHOLESTEROL INCREASED
     Dosage: 10 MG PO
     Route: 048
     Dates: start: 20040801
  2. DIURETICS [Concomitant]
  3. HIGH BLOOD PRESSURE MEDICATION [Concomitant]

REACTIONS (4)
  - HAIR GROWTH ABNORMAL [None]
  - INSOMNIA [None]
  - MOBILITY DECREASED [None]
  - PAIN IN EXTREMITY [None]
